FAERS Safety Report 9768368 (Version 1)
Quarter: 2013Q4

REPORT INFORMATION
  Report Type: Spontaneous
  Country: JP (occurrence: JP)
  Receive Date: 20131217
  Receipt Date: 20131217
  Transmission Date: 20140711
  Serious: Yes (Hospitalization)
  Sender: FDA-Public Use
  Company Number: PHHY2013JP146540

PATIENT
  Age: 51 Year
  Sex: Male

DRUGS (1)
  1. AMIODARONE SANDOZ [Suspect]
     Route: 048

REACTIONS (6)
  - Cardiac failure [Unknown]
  - Haemodynamic instability [Unknown]
  - Hyperthyroidism [Unknown]
  - Cold sweat [Unknown]
  - Thyroglobulin increased [Recovering/Resolving]
  - Thyroid function test abnormal [Recovering/Resolving]
